FAERS Safety Report 6015101-4 (Version None)
Quarter: 2008Q4

REPORT INFORMATION
  Report Type: 
  Country: None (occurrence: None)
  Receive Date: 20081222
  Receipt Date: 20081216
  Transmission Date: 20090506
  Serious: Yes (Other)
  Sender: FDA-Public Use
  Company Number: US-BRISTOL-MYERS SQUIBB COMPANY-14405146

PATIENT
  Age: 61 Year
  Sex: Female

DRUGS (4)
  1. AVAPRO [Suspect]
     Indication: HYPERTENSION
  2. SYNTHROID [Concomitant]
  3. NEXIUM [Concomitant]
  4. ADVAIR DISKUS 250/50 [Concomitant]

REACTIONS (5)
  - BLOOD PRESSURE ABNORMAL [None]
  - BLOOD PRESSURE INCREASED [None]
  - DYSGEUSIA [None]
  - EYE HAEMORRHAGE [None]
  - FATIGUE [None]
